FAERS Safety Report 4459785-0 (Version None)
Quarter: 2004Q3

REPORT INFORMATION
  Report Type: 
  Country: None (occurrence: None)
  Receive Date: 20040928
  Receipt Date: 20040526
  Transmission Date: 20050211
  Serious: No
  Sender: FDA-Public Use
  Company Number: US-BRISTOL-MYERS SQUIBB COMPANY-12597290

PATIENT
  Sex: Female

DRUGS (1)
  1. KENALOG-40 [Suspect]
     Dosage: IN RIGHT BUTTOCK
     Route: 030

REACTIONS (2)
  - INJECTION SITE DISCOLOURATION [None]
  - INJECTION SITE SCAR [None]
